FAERS Safety Report 21520329 (Version 2)
Quarter: 2022Q4

REPORT INFORMATION
  Report Type: Spontaneous
  Country: US (occurrence: US)
  Receive Date: 20221028
  Receipt Date: 20221104
  Transmission Date: 20230113
  Serious: No
  Sender: FDA-Public Use
  Company Number: US-PFIZER INC-202201253592

PATIENT
  Age: 46 Year
  Sex: Female

DRUGS (3)
  1. MORPHINE SULFATE [Suspect]
     Active Substance: MORPHINE SULFATE
     Indication: Pain
     Dosage: UNK
  2. OXYCONTIN [Suspect]
     Active Substance: OXYCODONE HYDROCHLORIDE
     Indication: Pain
     Dosage: UNK
  3. OXYCODONE [Suspect]
     Active Substance: OXYCODONE
     Indication: Pain
     Dosage: UNK

REACTIONS (1)
  - Drug ineffective [Unknown]
